FAERS Safety Report 20501248 (Version 2)
Quarter: 2022Q1

REPORT INFORMATION
  Report Type: Spontaneous
  Country: GB (occurrence: None)
  Receive Date: 20220222
  Receipt Date: 20220328
  Transmission Date: 20220423
  Serious: Yes (Hospitalization, Other)
  Sender: FDA-Public Use
  Company Number: GB-Hikma Pharmaceuticals USA Inc.-GB-H14001-22-00431

PATIENT
  Age: 68 Year
  Sex: Female
  Weight: 102.2 kg

DRUGS (4)
  1. CARBOPLATIN [Suspect]
     Active Substance: CARBOPLATIN
     Indication: Anal squamous cell carcinoma
     Dosage: UNKNOWN
     Route: 042
     Dates: start: 20210922
  2. RETIFANLIMAB [Suspect]
     Active Substance: RETIFANLIMAB
     Indication: Anal squamous cell carcinoma
     Route: 042
     Dates: start: 20210922
  3. PACLITAXEL [Suspect]
     Active Substance: PACLITAXEL
     Indication: Anal squamous cell carcinoma
     Route: 042
     Dates: start: 20210922
  4. LOPERAMIDE [Concomitant]
     Active Substance: LOPERAMIDE
     Indication: Product used for unknown indication
     Dosage: UNKNOWN
     Route: 065
     Dates: start: 20211004

REACTIONS (15)
  - Diarrhoea [Recovered/Resolved]
  - Wound infection [Recovered/Resolved]
  - Paraesthesia [Unknown]
  - Inflammation [Unknown]
  - Nausea [Recovering/Resolving]
  - Fatigue [Unknown]
  - Sleep disorder [Unknown]
  - Asthenia [Unknown]
  - Nervousness [Unknown]
  - Malaise [Unknown]
  - Frequent bowel movements [Unknown]
  - Feeling cold [Unknown]
  - Pyrexia [Unknown]
  - Chills [Unknown]
  - Purulent discharge [Unknown]

NARRATIVE: CASE EVENT DATE: 20220122
